FAERS Safety Report 6197290-4 (Version None)
Quarter: 2009Q2

REPORT INFORMATION
  Report Type: 
  Country: None (occurrence: None)
  Receive Date: 20090518
  Receipt Date: 20090505
  Transmission Date: 20091009
  Serious: No
  Sender: FDA-Public Use
  Company Number: 006359

PATIENT

DRUGS (1)
  1. PLETAL [Suspect]

REACTIONS (2)
  - MICROCYTIC ANAEMIA [None]
  - RENAL IMPAIRMENT [None]
